FAERS Safety Report 10469630 (Version 1)
Quarter: 2014Q3

REPORT INFORMATION
  Report Type: Spontaneous
  Country: US (occurrence: None)
  Receive Date: 20140922
  Receipt Date: 20140922
  Transmission Date: 20150326
  Serious: No
  Sender: FDA-Public Use
  Company Number: None

PATIENT
  Age: 57 Year
  Sex: Male

DRUGS (1)
  1. VIVITROL [Suspect]
     Active Substance: NALTREXONE
     Route: 030
     Dates: start: 20140822

REACTIONS (2)
  - Penis disorder [None]
  - Hypoaesthesia [None]

NARRATIVE: CASE EVENT DATE: 20140822
